FAERS Safety Report 4439291-X (Version None)
Quarter: 2004Q3

REPORT INFORMATION
  Report Type: 
  Country: None (occurrence: None)
  Receive Date: 20040831
  Receipt Date: 20040816
  Transmission Date: 20050211
  Serious: Yes (Other)
  Sender: FDA-Public Use
  Company Number: 201328

PATIENT
  Age: 48 Year
  Sex: Female

DRUGS (10)
  1. AVONEX [Suspect]
     Indication: MULTIPLE SCLEROSIS
     Dosage: 30 MCG QW IM
     Route: 030
     Dates: start: 20030101
  2. AVONEX [Suspect]
     Indication: MULTIPLE SCLEROSIS
     Dosage: 30 MCG QW IM
     Route: 030
  3. NAPRELAN [Concomitant]
  4. XANAX [Concomitant]
  5. SACRO-B [Concomitant]
  6. CALCIUM W/MAGNESIUM [Concomitant]
  7. EICOSAPENTAENOIC ACID [Concomitant]
  8. L-CARNITINE [Concomitant]
  9. MELATONIN [Concomitant]
  10. GREEN TEA EXTRACT [Concomitant]

REACTIONS (2)
  - BREAST CANCER [None]
  - METASTASES TO LYMPH NODES [None]
